FAERS Safety Report 4947922-0 (Version None)
Quarter: 2006Q1

REPORT INFORMATION
  Report Type: 
  Country: None (occurrence: None)
  Receive Date: 20060317
  Receipt Date: 20060317
  Transmission Date: 20060701
  Serious: Yes (Death, Hospitalization)
  Sender: FDA-Public Use
  Company Number: None

PATIENT
  Sex: Male
  Weight: 72.8 kg

DRUGS (4)
  1. MS CONTIN [Suspect]
     Indication: PAIN
     Dosage: 25 MG BID NG
  2. FENTANYL [Suspect]
     Dosage: 25 MCG Q3DAYS DERM
  3. ZOCOR [Suspect]
     Indication: HYPERLIPIDAEMIA
     Dosage: 40 MG DAILY NG
  4. IRESSA [Suspect]
     Indication: NEOPLASM MALIGNANT
     Dosage: 250 MG DAILY PO
     Route: 048
     Dates: start: 20060116, end: 20060304

REACTIONS (6)
  - ASPIRATION [None]
  - DEHYDRATION [None]
  - HYPOTENSION [None]
  - RESPIRATORY DISTRESS [None]
  - SEPSIS [None]
  - UPPER RESPIRATORY TRACT CONGESTION [None]
